FAERS Safety Report 25454697 (Version 3)
Quarter: 2025Q3

REPORT INFORMATION
  Report Type: Report from Study
  Country: US (occurrence: US)
  Receive Date: 20250619
  Receipt Date: 20250905
  Transmission Date: 20251020
  Serious: No
  Sender: SUNOVION
  Company Number: US-SUMITOMO PHARMA SWITZERLAND GMBH-2025SPA006642

PATIENT
  Age: 70 Year
  Sex: Male

DRUGS (6)
  1. ORGOVYX [Suspect]
     Active Substance: RELUGOLIX
     Indication: Prostate cancer
     Dosage: 120 MG, QD
     Route: 048
     Dates: start: 202504
  2. LEVOFLOXACIN [Concomitant]
     Active Substance: LEVOFLOXACIN
  3. TADALAFIL [Concomitant]
     Active Substance: TADALAFIL
  4. ABIRATERONE [Concomitant]
     Active Substance: ABIRATERONE
  5. PREDNISONE [Concomitant]
     Active Substance: PREDNISONE
  6. FLOMAX [Concomitant]
     Active Substance: TAMSULOSIN HYDROCHLORIDE

REACTIONS (4)
  - Diarrhoea [Unknown]
  - Fatigue [Unknown]
  - Product dose omission issue [Recovered/Resolved]
  - Incorrect dose administered [Recovered/Resolved]
